FAERS Safety Report 4568006-X (Version None)
Quarter: 2005Q1

REPORT INFORMATION
  Report Type: 
  Country: None (occurrence: None)
  Receive Date: 20050202
  Receipt Date: 20050103
  Transmission Date: 20050727
  Serious: Yes (Other)
  Sender: FDA-Public Use
  Company Number: US-BOEHRINGER INGELHEIM PHARMMACEUTICALS, INC.-2005-BP-00131BP

PATIENT
  Age: 44 Year
  Sex: Female
  Weight: 53 kg

DRUGS (5)
  1. SPIRIVA [Suspect]
     Indication: CHRONIC OBSTRUCTIVE PULMONARY DISEASE
     Route: 055
     Dates: start: 20041101, end: 20050103
  2. ADVAIR DISKUS 100/50 [Suspect]
     Indication: CHRONIC OBSTRUCTIVE PULMONARY DISEASE
     Dates: end: 20041201
  3. PROVENTIL [Concomitant]
  4. XANAX [Concomitant]
     Indication: ANXIETY
  5. SARAFE [Concomitant]

REACTIONS (10)
  - ABORTION SPONTANEOUS [None]
  - BREAST DISCOLOURATION [None]
  - BREAST PAIN [None]
  - DRUG EXPOSURE DURING PREGNANCY [None]
  - GALACTORRHOEA [None]
  - HAEMORRHAGIC OVARIAN CYST [None]
  - HYPERTROPHY BREAST [None]
  - MENSTRUAL DISORDER [None]
  - NIPPLE DISORDER [None]
  - PREGNANCY [None]
